FAERS Safety Report 18859967 (Version 1)
Quarter: 2021Q1

REPORT INFORMATION
  Report Type: Spontaneous
  Country: US (occurrence: US)
  Receive Date: 20210208
  Receipt Date: 20210208
  Transmission Date: 20210420
  Serious: No
  Sender: FDA-Public Use
  Company Number: None

PATIENT
  Age: 33 Year
  Sex: Female
  Weight: 133.2 kg

DRUGS (2)
  1. LISINOPRIL. [Suspect]
     Active Substance: LISINOPRIL
     Indication: HYPERTENSION
     Dosage: ?          QUANTITY:1 TABLET(S);?
     Route: 048
     Dates: start: 20200921, end: 20201207
  2. LISINOPRIL AND HYDROCHLOROTHIAZIDE [Concomitant]
     Active Substance: HYDROCHLOROTHIAZIDE\LISINOPRIL

REACTIONS (12)
  - Dyskinesia [None]
  - Product quality issue [None]
  - Head discomfort [None]
  - Panic reaction [None]
  - Depression [None]
  - Tinnitus [None]
  - Ear congestion [None]
  - Cognitive disorder [None]
  - Stomatitis [None]
  - Glossodynia [None]
  - Feeling abnormal [None]
  - Dizziness [None]

NARRATIVE: CASE EVENT DATE: 20200921
